FAERS Safety Report 21916778 (Version 3)
Quarter: 2023Q1

REPORT INFORMATION
  Report Type: Spontaneous
  Country: DE (occurrence: None)
  Receive Date: 20230126
  Receipt Date: 20230313
  Transmission Date: 20230418
  Serious: Yes (Other)
  Sender: FDA-Public Use
  Company Number: 2023A016081

PATIENT
  Sex: Female

DRUGS (11)
  1. SAPHNELO [Suspect]
     Active Substance: ANIFROLUMAB-FNIA
     Route: 042
  2. MYCOPHENOLATE MOFETIL [Concomitant]
     Active Substance: MYCOPHENOLATE MOFETIL
     Indication: Rheumatic disorder
  3. HYDROXYCHLOROQUINE [Concomitant]
     Active Substance: HYDROXYCHLOROQUINE
     Indication: Rheumatic disorder
  4. PREDNISOLONE [Concomitant]
     Active Substance: PREDNISOLONE
     Indication: Rheumatic disorder
  5. RAMIPRIL [Concomitant]
     Active Substance: RAMIPRIL
     Indication: Rheumatic disorder
  6. CHOLECALCIFEROL [Concomitant]
     Active Substance: CHOLECALCIFEROL
     Indication: Rheumatic disorder
  7. CALCIUM [Concomitant]
     Active Substance: CALCIUM
     Indication: Rheumatic disorder
  8. SULFAMETHOXAZOLE\TRIMETHOPRIM [Concomitant]
     Active Substance: SULFAMETHOXAZOLE\TRIMETHOPRIM
     Indication: Rheumatic disorder
  9. CEFPODOXIME [Concomitant]
     Active Substance: CEFPODOXIME
     Indication: Rheumatic disorder
  10. CYCLOPHOSPHAMIDE [Concomitant]
     Active Substance: CYCLOPHOSPHAMIDE
     Indication: Rheumatic disorder
  11. BENLYSTA [Concomitant]
     Active Substance: BELIMUMAB
     Indication: Rheumatic disorder

REACTIONS (8)
  - Lupus nephritis [Unknown]
  - Nephrotic syndrome [Unknown]
  - Infection [Unknown]
  - Oropharyngeal pain [Unknown]
  - Cough [Unknown]
  - Fluid retention [Unknown]
  - Proteinuria [Unknown]
  - Haematuria [Unknown]
